FAERS Safety Report 10372401 (Version 2)
Quarter: 2014Q4

REPORT INFORMATION
  Report Type: Spontaneous
  Country: US (occurrence: US)
  Receive Date: 20140808
  Receipt Date: 20141205
  Transmission Date: 20150528
  Serious: No
  Sender: FDA-Public Use
  Company Number: US-BRISTOL-MYERS SQUIBB COMPANY-20943486

PATIENT
  Age: 63 Year
  Sex: Male

DRUGS (1)
  1. SPRYCEL [Suspect]
     Active Substance: DASATINIB
     Indication: CHRONIC LEUKAEMIA
     Dosage: TABS?29APR14
     Route: 048
     Dates: start: 20140429

REACTIONS (4)
  - Lung disorder [Unknown]
  - Chest pain [Unknown]
  - Musculoskeletal pain [Unknown]
  - Neck pain [Unknown]
